FAERS Safety Report 15777962 (Version 1)
Quarter: 2018Q4

REPORT INFORMATION
  Report Type: Report from Study
  Country: BR (occurrence: BR)
  Receive Date: 20181231
  Receipt Date: 20181231
  Transmission Date: 20190205
  Serious: Yes (Hospitalization)
  Sender: FDA-Public Use
  Company Number: PHHY2018BR197781

PATIENT
  Sex: Male
  Weight: 40 kg

DRUGS (1)
  1. EXELON PATCH [Suspect]
     Active Substance: RIVASTIGMINE
     Indication: TREMOR
     Dosage: 9.5 MG, QD PATCH 5 (CM2)
     Route: 062
     Dates: start: 20181217

REACTIONS (4)
  - Cerebrovascular accident [Unknown]
  - Aphasia [Unknown]
  - Mobility decreased [Unknown]
  - Product use in unapproved indication [Unknown]
